FAERS Safety Report 5632901-0 (Version None)
Quarter: 2008Q1

REPORT INFORMATION
  Report Type: 
  Country: None (occurrence: None)
  Receive Date: 20080214
  Receipt Date: 20080201
  Transmission Date: 20080703
  Serious: Yes (Other)
  Sender: FDA-Public Use
  Company Number: 2008003500

PATIENT
  Sex: Female

DRUGS (1)
  1. COOL MINT LISTERINE (MENTHOL METHYL SALICYLATE, EUCALYPTOL, THYMOL) [Suspect]
     Dosage: ORAL
     Route: 048
     Dates: start: 20080129, end: 20080129

REACTIONS (4)
  - BURNING SENSATION MUCOSAL [None]
  - HYPOAESTHESIA [None]
  - ORAL DISORDER [None]
  - ORAL PAIN [None]
